FAERS Safety Report 15677176 (Version 8)
Quarter: 2019Q2

REPORT INFORMATION
  Report Type: Spontaneous
  Country: US (occurrence: US)
  Receive Date: 20181130
  Receipt Date: 20190628
  Transmission Date: 20190711
  Serious: Yes (Other)
  Sender: FDA-Public Use
  Company Number: US-PFIZER INC-2018495966

PATIENT
  Age: 59 Year
  Sex: Male
  Weight: 82 kg

DRUGS (4)
  1. LYRICA [Suspect]
     Active Substance: PREGABALIN
     Indication: NERVE INJURY
     Dosage: 200 MG, 3X/DAY
     Route: 048
  2. LYRICA [Suspect]
     Active Substance: PREGABALIN
     Indication: NEUROPATHY PERIPHERAL
     Dosage: 225 MG, 3X/DAY
     Route: 048
  3. LYRICA [Suspect]
     Active Substance: PREGABALIN
     Indication: NEUROPATHY PERIPHERAL
     Dosage: UNK
     Route: 048
     Dates: start: 2016
  4. LYRICA [Suspect]
     Active Substance: PREGABALIN
     Indication: NEURALGIA
     Dosage: UNK
     Route: 048

REACTIONS (13)
  - Drug dependence [Unknown]
  - Ear haemorrhage [Not Recovered/Not Resolved]
  - Withdrawal syndrome [Unknown]
  - Loss of personal independence in daily activities [Unknown]
  - Vertigo [Not Recovered/Not Resolved]
  - Dysstasia [Unknown]
  - Intentional product use issue [Unknown]
  - Deafness [Not Recovered/Not Resolved]
  - Circumstance or information capable of leading to medication error [Unknown]
  - Musculoskeletal disorder [Unknown]
  - Tinnitus [Unknown]
  - Prescribed overdose [Unknown]
  - Onychomycosis [Unknown]

NARRATIVE: CASE EVENT DATE: 20181225
